FAERS Safety Report 14811311 (Version 1)
Quarter: 2018Q2

REPORT INFORMATION
  Report Type: Report from Study
  Country: US (occurrence: US)
  Receive Date: 20180425
  Receipt Date: 20180425
  Transmission Date: 20180711
  Serious: No
  Sender: FDA-Public Use
  Company Number: US-AMGEN-USASL2018040648

PATIENT
  Sex: Female

DRUGS (1)
  1. REPATHA [Suspect]
     Active Substance: EVOLOCUMAB
     Indication: TYPE IIA HYPERLIPIDAEMIA
     Dosage: 140 MG, Q2WK
     Route: 065
     Dates: start: 2017

REACTIONS (8)
  - Injection site swelling [Unknown]
  - Nausea [Unknown]
  - Injection site erythema [Unknown]
  - Injection site mass [Unknown]
  - Arthralgia [Not Recovered/Not Resolved]
  - Injection site warmth [Unknown]
  - Injection site pruritus [Unknown]
  - Injection site pain [Unknown]
